FAERS Safety Report 6145907-2 (Version None)
Quarter: 2009Q2

REPORT INFORMATION
  Report Type: 
  Country: None (occurrence: None)
  Receive Date: 20090407
  Receipt Date: 20090331
  Transmission Date: 20091009
  Serious: Yes (Hospitalization)
  Sender: FDA-Public Use
  Company Number: PT-ROCHE-625255

PATIENT
  Age: 44 Year
  Sex: Male

DRUGS (2)
  1. CEFTRIAXONE [Suspect]
     Route: 065
  2. AZITHROMYCIN [Suspect]
     Route: 065

REACTIONS (2)
  - ENDOCARDITIS [None]
  - SEPTIC EMBOLUS [None]
